FAERS Safety Report 4555868-5 (Version None)
Quarter: 2005Q1

REPORT INFORMATION
  Report Type: 
  Country: None (occurrence: None)
  Receive Date: 20050118
  Receipt Date: 20040924
  Transmission Date: 20050727
  Serious: Yes (Hospitalization)
  Sender: FDA-Public Use
  Company Number: A001-002-006227

PATIENT
  Sex: Female

DRUGS (3)
  1. ARICEPT [Suspect]
     Indication: DEMENTIA
     Dosage: ORAL
     Route: 048
  2. EXELON [Suspect]
     Indication: DEMENTIA
  3. REQUIP [Suspect]
     Indication: DEMENTIA

REACTIONS (3)
  - AGGRESSION [None]
  - DYSPNOEA [None]
  - LOSS OF CONSCIOUSNESS [None]
